FAERS Safety Report 8083250-5 (Version None)
Quarter: 2012Q1

REPORT INFORMATION
  Report Type: 
  Country: None (occurrence: None)
  Receive Date: 20120127
  Receipt Date: 20110303
  Transmission Date: 20120608
  Serious: Yes (Other)
  Sender: FDA-Public Use
  Company Number: US-ABBOTT-11P-163-0709223-00

PATIENT
  Age: 76 Year
  Sex: Male

DRUGS (16)
  1. NASACORT [Concomitant]
     Indication: PRODUCT USED FOR UNKNOWN INDICATION
  2. BACTRIM [Concomitant]
     Indication: INFECTION PROPHYLAXIS
     Dosage: 800MG ON MONDAY, WEDNESDAY AND FRIDAY
  3. LIPITOR [Concomitant]
     Indication: BLOOD CHOLESTEROL INCREASED
     Dosage: 10MG ON MONDAY, WEDNESDAY AND FRIDAY
  4. VITAMIN D [Concomitant]
     Indication: PRODUCT USED FOR UNKNOWN INDICATION
  5. MULTI-VITAMINS [Concomitant]
     Indication: PRODUCT USED FOR UNKNOWN INDICATION
  6. KEPPRA [Concomitant]
     Indication: CONVULSION PROPHYLAXIS
  7. HUMIRA [Suspect]
     Indication: COLITIS ULCERATIVE
     Route: 058
     Dates: start: 20090401, end: 20110101
  8. METFFORMIN HYDROCHLORIDE [Concomitant]
     Indication: DIABETES MELLITUS
  9. FLOMAX [Concomitant]
     Indication: PROSTATOMEGALY
  10. TEMODAR [Concomitant]
     Indication: BRAIN NEOPLASM
     Dosage: 250MG DAILY
  11. HUMIRA [Suspect]
     Indication: COLITIS ULCERATIVE
     Dates: start: 20110301
  12. PRILOSEC [Concomitant]
     Indication: NAUSEA
  13. AVODART [Concomitant]
     Indication: PROSTATOMEGALY
  14. ASACOL [Concomitant]
     Indication: COLITIS ULCERATIVE
  15. VFEND [Concomitant]
     Indication: INFECTION PROPHYLAXIS
     Dosage: 200 MG ON TUESDAY AND SATURDAY
  16. CALCIUM WITH VITAMIN D [Concomitant]
     Indication: PRODUCT USED FOR UNKNOWN INDICATION

REACTIONS (1)
  - BRAIN NEOPLASM [None]
